FAERS Safety Report 4432372-6 (Version None)
Quarter: 2004Q3

REPORT INFORMATION
  Report Type: 
  Country: None (occurrence: None)
  Receive Date: 20040825
  Receipt Date: 20040728
  Transmission Date: 20050211
  Serious: Yes (Hospitalization)
  Sender: FDA-Public Use
  Company Number: US-GLAXOSMITHKLINE-A0520089A

PATIENT
  Age: 55 Year
  Sex: Male

DRUGS (5)
  1. LAMICTAL [Suspect]
     Indication: BIPOLAR DISORDER
     Route: 048
     Dates: start: 20040301
  2. FLUOXETINE [Suspect]
     Dates: end: 20040727
  3. RISPERDAL [Concomitant]
  4. LITHIUM [Concomitant]
  5. CLONAZEPAM [Concomitant]

REACTIONS (7)
  - AGITATION [None]
  - DEPRESSION [None]
  - DEPRESSION SUICIDAL [None]
  - DRUG INEFFECTIVE [None]
  - IRRITABILITY [None]
  - NERVOUSNESS [None]
  - PSYCHOMOTOR HYPERACTIVITY [None]
